FAERS Safety Report 18215131 (Version 1)
Quarter: 2020Q3

REPORT INFORMATION
  Report Type: Spontaneous
  Country: US (occurrence: US)
  Receive Date: 20200831
  Receipt Date: 20200831
  Transmission Date: 20201103
  Serious: No
  Sender: FDA-Public Use
  Company Number: US-UPSHER-SMITH LABORATORIES, LLC-2019USL00742

PATIENT
  Sex: Female

DRUGS (3)
  1. SELEGILINE [Concomitant]
     Active Substance: SELEGILINE
     Dosage: 1 MG, 1X/DAY
     Route: 048
  2. REQUIP [Concomitant]
     Active Substance: ROPINIROLE HYDROCHLORIDE
     Dosage: 6 MG, 2X/DAY
     Route: 048
  3. AMANTADINE HYDROCHLORIDE. [Suspect]
     Active Substance: AMANTADINE HYDROCHLORIDE
     Dosage: 100 MG, 2X/DAY
     Route: 048
     Dates: start: 201808, end: 201906

REACTIONS (1)
  - Therapeutic product effect decreased [Recovered/Resolved]
